FAERS Safety Report 7535994-9 (Version None)
Quarter: 2011Q2

REPORT INFORMATION
  Report Type: 
  Country: None (occurrence: None)
  Receive Date: 20110602
  Receipt Date: 20110526
  Transmission Date: 20111010
  Serious: Yes (Hospitalization)
  Sender: FDA-Public Use
  Company Number: 1000019278

PATIENT
  Age: 62 Year
  Sex: Female

DRUGS (6)
  1. PRAVACHOL [Concomitant]
  2. ESTRADIOL [Concomitant]
  3. MAXZIDE 9TRIAMTERENE, HYDROCHLOROTHIAZIDE) [Concomitant]
  4. CITALOPRAM HYDROBROMIDE [Suspect]
     Indication: DYSTHYMIC DISORDER
     Dosage: 40 MG (40 MG, 1 IN 1 D), ORAL
     Route: 048
     Dates: start: 20080227, end: 20110309
  5. CITALOPRAM HYDROBROMIDE [Suspect]
     Indication: ANXIETY
     Dosage: 40 MG (40 MG, 1 IN 1 D), ORAL
     Route: 048
     Dates: start: 20080227, end: 20110309
  6. NORVASC [Concomitant]

REACTIONS (4)
  - MANIA [None]
  - PSYCHOTIC DISORDER [None]
  - INSOMNIA [None]
  - AFFECTIVE DISORDER [None]
